FAERS Safety Report 4556228-3 (Version None)
Quarter: 2005Q1

REPORT INFORMATION
  Report Type: 
  Country: None (occurrence: None)
  Receive Date: 20050119
  Receipt Date: 20040811
  Transmission Date: 20050727
  Serious: Yes (Other)
  Sender: FDA-Public Use
  Company Number: US-MERCK-0408USA00967

PATIENT
  Age: 38 Year
  Sex: Male
  Weight: 85 kg

DRUGS (6)
  1. VIOXX [Suspect]
     Indication: ARTHRALGIA
     Route: 048
     Dates: start: 20010301, end: 20010901
  2. VIOXX [Suspect]
     Route: 048
     Dates: start: 20010301, end: 20010901
  3. VIOXX [Suspect]
     Route: 047
     Dates: start: 20010611, end: 20010601
  4. VIOXX [Suspect]
     Route: 048
     Dates: start: 20010301, end: 20010901
  5. VIOXX [Suspect]
     Route: 048
     Dates: start: 20010301, end: 20010901
  6. VIOXX [Suspect]
     Route: 047
     Dates: start: 20010611, end: 20010601

REACTIONS (14)
  - ANEURYSM [None]
  - ANXIETY [None]
  - ARTHRITIS [None]
  - BLINDNESS UNILATERAL [None]
  - CATARACT [None]
  - EYE HAEMORRHAGE [None]
  - GOUT [None]
  - HYPERLIPIDAEMIA [None]
  - ISCHAEMIC STROKE [None]
  - MYOCARDIAL INFARCTION [None]
  - PAIN IN EXTREMITY [None]
  - POST-TRAUMATIC STRESS DISORDER [None]
  - RETINAL VEIN OCCLUSION [None]
  - SYNOVITIS [None]
